FAERS Safety Report 5034163-4 (Version None)
Quarter: 2006Q2

REPORT INFORMATION
  Report Type: 
  Country: None (occurrence: None)
  Receive Date: 20060621
  Receipt Date: 20060602
  Transmission Date: 20061013
  Serious: Yes (Hospitalization, Other)
  Sender: FDA-Public Use
  Company Number: US200606001216

PATIENT
  Age: 73 Year
  Sex: Male

DRUGS (2)
  1. ZYPREXA [Suspect]
     Indication: DEPRESSION
     Dates: start: 20020101, end: 20050501
  2. ZOLOFT [Concomitant]

REACTIONS (13)
  - CARDIAC DISORDER [None]
  - DELUSIONAL PERCEPTION [None]
  - FAT EMBOLISM [None]
  - HAEMORRHAGE [None]
  - HALLUCINATION [None]
  - HIP ARTHROPLASTY [None]
  - HISTAMINE LEVEL INCREASED [None]
  - INSOMNIA [None]
  - LOSS OF CONSCIOUSNESS [None]
  - MANIA [None]
  - OXYGEN CONSUMPTION DECREASED [None]
  - PRURITUS [None]
  - RESTLESSNESS [None]
